FAERS Safety Report 23202062 (Version 2)
Quarter: 2023Q4

REPORT INFORMATION
  Report Type: Report from Study
  Country: AR (occurrence: AR)
  Receive Date: 20231120
  Receipt Date: 20231208
  Transmission Date: 20240109
  Serious: Yes (Death)
  Sender: FDA-Public Use
  Company Number: AR-BoehringerIngelheim-2023-BI-269875

PATIENT
  Age: 83 Year
  Sex: Male
  Weight: 50 kg

DRUGS (2)
  1. OFEV [Suspect]
     Active Substance: NINTEDANIB
     Indication: Idiopathic pulmonary fibrosis
     Route: 048
     Dates: start: 20230515
  2. FILTEN [Concomitant]
     Indication: Arrhythmia

REACTIONS (2)
  - Cardio-respiratory arrest [Fatal]
  - Total lung capacity decreased [Unknown]

NARRATIVE: CASE EVENT DATE: 20231001
